FAERS Safety Report 4998818-X (Version None)
Quarter: 2006Q2

REPORT INFORMATION
  Report Type: 
  Country: None (occurrence: None)
  Receive Date: 20060510
  Receipt Date: 20050208
  Transmission Date: 20061013
  Serious: Yes (Hospitalization, Other)
  Sender: FDA-Public Use
  Company Number: US-MERCK-0502USA01064

PATIENT
  Age: 72 Year
  Sex: Male
  Weight: 80 kg

DRUGS (4)
  1. VIOXX [Suspect]
     Indication: CARDIAC DISORDER
     Route: 048
     Dates: start: 20010101, end: 20021201
  2. VIOXX [Suspect]
     Route: 048
     Dates: start: 20010101, end: 20021201
  3. TYLENOL [Concomitant]
     Route: 048
  4. ADVIL [Concomitant]
     Route: 048

REACTIONS (6)
  - ANXIETY [None]
  - ATRIOVENTRICULAR BLOCK [None]
  - BACK DISORDER [None]
  - HEART INJURY [None]
  - MYOCARDIAL INFARCTION [None]
  - THROMBOSIS [None]
